FAERS Safety Report 4932388-7 (Version None)
Quarter: 2006Q1

REPORT INFORMATION
  Report Type: 
  Country: None (occurrence: None)
  Receive Date: 20060228
  Receipt Date: 20060215
  Transmission Date: 20060701
  Serious: Yes (Other)
  Sender: FDA-Public Use
  Company Number: 200610741BCC

PATIENT
  Sex: Female

DRUGS (1)
  1. MIDOL [Suspect]
     Dosage: 880 MG, TOTAL DAILY, ORAL
     Route: 048
     Dates: start: 20060215

REACTIONS (2)
  - DYSSTASIA [None]
  - INCOHERENT [None]
